FAERS Safety Report 19404958 (Version 1)
Quarter: 2021Q2

REPORT INFORMATION
  Report Type: Report from Study
  Country: US (occurrence: US)
  Receive Date: 20210611
  Receipt Date: 20210611
  Transmission Date: 20210717
  Serious: Yes (Hospitalization, Other)
  Sender: FDA-Public Use
  Company Number: US-ALS-000297

PATIENT
  Age: 47 Year
  Sex: Female

DRUGS (1)
  1. METFORMIN [Suspect]
     Active Substance: METFORMIN HYDROCHLORIDE
     Indication: PRODUCT USED FOR UNKNOWN INDICATION
     Dosage: 1000 MG BID (90 G): ACUTE OVERDOSE. HOME DOSE LISTED WITH DOSE INGESTED IN PARENTHESES
     Route: 048

REACTIONS (8)
  - Renal tubular necrosis [Recovered/Resolved]
  - Toxicity to various agents [Unknown]
  - Lactic acidosis [Recovered/Resolved]
  - Respiratory failure [Recovered/Resolved]
  - Haemodialysis [Unknown]
  - Shock [Recovered/Resolved]
  - Acidosis [Recovered/Resolved]
  - Overdose [Unknown]
